FAERS Safety Report 6241984-9 (Version None)
Quarter: 2009Q2

REPORT INFORMATION
  Report Type: 
  Country: None (occurrence: None)
  Receive Date: 20090617
  Receipt Date: 20090609
  Transmission Date: 20091009
  Serious: Yes (Other)
  Sender: FDA-Public Use
  Company Number: AEUSA200900082

PATIENT
  Age: 2 Year
  Sex: Female
  Weight: 9.9791 kg

DRUGS (5)
  1. GAMASTAN [Suspect]
     Indication: SELECTIVE IGA IMMUNODEFICIENCY
     Dosage: 2 ML; 1X; IM
     Route: 030
     Dates: start: 20090316, end: 20090316
  2. GAMASTAN [Suspect]
     Indication: SELECTIVE IGG SUBCLASS DEFICIENCY
     Dosage: 2 ML; 1X; IM
     Route: 030
     Dates: start: 20090316, end: 20090316
  3. PREVACID [Concomitant]
  4. PROBIOTICA [Concomitant]
  5. MULTI-VITAMINS [Concomitant]

REACTIONS (9)
  - ABDOMINAL PAIN UPPER [None]
  - BACK PAIN [None]
  - ESCHERICHIA URINARY TRACT INFECTION [None]
  - FEELING ABNORMAL [None]
  - LETHARGY [None]
  - NEPHROLITHIASIS [None]
  - PALLOR [None]
  - PROTEUS INFECTION [None]
  - URINARY TRACT INFECTION BACTERIAL [None]
